FAERS Safety Report 4969736-8 (Version None)
Quarter: 2006Q1

REPORT INFORMATION
  Report Type: 
  Country: None (occurrence: None)
  Receive Date: 20060202
  Receipt Date: 20050516
  Transmission Date: 20060701
  Serious: Yes (Hospitalization)
  Sender: FDA-Public Use
  Company Number: US-2005-007915

PATIENT
  Age: 30 Year
  Sex: Female
  Weight: 73.5 kg

DRUGS (1)
  1. MIRENA [Suspect]
     Indication: CONTRACEPTION
     Dosage: 20 ?G/DAY, CONT, INTRA-UTERINE
     Route: 015

REACTIONS (2)
  - RUPTURED ECTOPIC PREGNANCY [None]
  - THYROID NEOPLASM [None]
